FAERS Safety Report 6021761-4 (Version None)
Quarter: 2008Q4

REPORT INFORMATION
  Report Type: 
  Country: None (occurrence: None)
  Receive Date: 20081229
  Receipt Date: 20081224
  Transmission Date: 20090506
  Serious: Yes (Death)
  Sender: FDA-Public Use
  Company Number: CA-SANOFI-SYNTHELABO-F01200801917

PATIENT
  Sex: Male
  Weight: 95.5 kg

DRUGS (10)
  1. ZOFRAN [Concomitant]
     Dosage: UNK
     Dates: start: 20081112, end: 20081214
  2. NABILONE [Concomitant]
     Dosage: UNK
     Dates: start: 20081112, end: 20081214
  3. ASPIRIN [Concomitant]
     Dosage: UNK
     Dates: start: 20020101, end: 20080814
  4. TRIAMTERENE AND HYDROCHLOROTHIAZIDE [Concomitant]
     Dosage: UNK
     Dates: start: 19980101, end: 20081214
  5. NORVASC [Concomitant]
     Dosage: UNK
     Dates: start: 19980101, end: 20081214
  6. CAPECITABINE [Suspect]
     Dosage: 14 DAYS OF A 21 DAY CYCLE 2150 MG
     Route: 048
     Dates: start: 20081214, end: 20081214
  7. IRINOTECAN HCL [Suspect]
     Dosage: 350 MG
     Route: 042
     Dates: start: 20081205, end: 20081205
  8. BEVACIZUMAB [Suspect]
     Dosage: 712.5 MG
     Route: 042
     Dates: start: 20081205, end: 20081205
  9. OXALIPLATIN [Suspect]
     Indication: COLORECTAL CANCER
     Dosage: 219 MG
     Route: 041
     Dates: start: 20081205, end: 20081205
  10. IMODIUM [Concomitant]
     Dosage: UNK
     Dates: start: 20081112, end: 20081214

REACTIONS (1)
  - DEATH [None]
